FAERS Safety Report 10160904 (Version 1)
Quarter: 2014Q2

REPORT INFORMATION
  Report Type: Spontaneous
  Country: US (occurrence: US)
  Receive Date: 20140508
  Receipt Date: 20140508
  Transmission Date: 20141212
  Serious: No
  Sender: FDA-Public Use
  Company Number: US-GILEAD-2014-0101632

PATIENT
  Sex: Male

DRUGS (3)
  1. SOVALDI [Suspect]
  2. PEGINTERFERON ALFA [Concomitant]
  3. RIBAVIRIN [Concomitant]

REACTIONS (4)
  - Memory impairment [Unknown]
  - Fatigue [Unknown]
  - Asthenia [Unknown]
  - Drug dose omission [Unknown]
